FAERS Safety Report 7657276-7 (Version None)
Quarter: 2011Q3

REPORT INFORMATION
  Report Type: 
  Country: None (occurrence: None)
  Receive Date: 20110804
  Receipt Date: 20110727
  Transmission Date: 20111222
  Serious: Yes (Disabling)
  Sender: FDA-Public Use
  Company Number: JP-EISAI INC-E0800-00082-SPO-JP

PATIENT
  Age: 52 Year
  Sex: Female

DRUGS (9)
  1. OXYCODONE HCL [Concomitant]
  2. TS-1 [Concomitant]
     Route: 048
  3. METHYCOBAL [Concomitant]
  4. CHINESE MEDICINE [Concomitant]
     Route: 048
  5. MARZULENE [Concomitant]
     Route: 048
  6. SALAGEN [Suspect]
     Route: 048
     Dates: start: 20110604, end: 20110606
  7. LOXONIN [Concomitant]
  8. ZOMETA [Concomitant]
     Route: 041
  9. PURSENNID [Concomitant]
     Route: 048

REACTIONS (1)
  - OPTIC NEURITIS [None]
